FAERS Safety Report 20293915 (Version 1)
Quarter: 2022Q1

REPORT INFORMATION
  Report Type: Report from Study
  Country: HU (occurrence: HU)
  Receive Date: 20220104
  Receipt Date: 20220104
  Transmission Date: 20220424
  Serious: Yes (Hospitalization)
  Sender: FDA-Public Use
  Company Number: HU-AstraZeneca-2021A908321

PATIENT
  Age: 2 Month
  Sex: Female
  Weight: 2.2 kg

DRUGS (1)
  1. SYNAGIS [Suspect]
     Active Substance: PALIVIZUMAB
     Indication: Antiviral prophylaxis
     Dosage: 15 MG/KG MONTHLY ADMINISTRATION FOR 5 MONTHS
     Route: 030

REACTIONS (2)
  - Bronchiolitis [Recovered/Resolved]
  - Neurological infection [Unknown]

NARRATIVE: CASE EVENT DATE: 20211218
